FAERS Safety Report 9950528 (Version 1)
Quarter: 2014Q1

REPORT INFORMATION
  Report Type: Report from Study
  Country: US (occurrence: US)
  Receive Date: 20140304
  Receipt Date: 20140304
  Transmission Date: 20141002
  Serious: No
  Sender: FDA-Public Use
  Company Number: US-ABBVIE-13P-163-1072914-00

PATIENT
  Age: 32 Year
  Sex: Female

DRUGS (3)
  1. HUMIRA [Suspect]
     Indication: ANKYLOSING SPONDYLITIS
     Dosage: INITIAL DOSE
     Dates: start: 20130403
  2. CYCLOBENZAPRINE [Concomitant]
     Indication: ANKYLOSING SPONDYLITIS
  3. MORPHINE [Concomitant]
     Indication: ANKYLOSING SPONDYLITIS
     Dosage: AS NEEDED

REACTIONS (1)
  - Abdominal discomfort [Not Recovered/Not Resolved]
